FAERS Safety Report 8515455-0 (Version None)
Quarter: 2012Q2

REPORT INFORMATION
  Report Type: 
  Country: None (occurrence: None)
  Receive Date: 20120406
  Receipt Date: 20090720
  Transmission Date: 20120825
  Serious: Yes (Other)
  Sender: FDA-Public Use
  Company Number: PHEH2009US07967

PATIENT
  Sex: Female

DRUGS (9)
  1. BONIVA [Concomitant]
  2. FUROSEMIDE (FUROSEMIDE) [Concomitant]
  3. METOPROLOL TARTRATE [Concomitant]
  4. PLAVIX [Concomitant]
  5. POTASSIUM (POTASSIUM) [Concomitant]
  6. OMEPRAZOLE [Concomitant]
  7. TASIGNA [Suspect]
     Indication: CHRONIC MYELOID LEUKAEMIA
     Dosage: 200 MG, BID, ORAL
     Route: 048
     Dates: start: 20080801
  8. CRESTOR [Concomitant]
  9. CEFPROZIL [Concomitant]

REACTIONS (3)
  - DYSPNOEA [None]
  - CONSTIPATION [None]
  - WEIGHT INCREASED [None]
